FAERS Safety Report 20078237 (Version 1)
Quarter: 2021Q4

REPORT INFORMATION
  Report Type: Spontaneous
  Country: US (occurrence: US)
  Receive Date: 20211117
  Receipt Date: 20211117
  Transmission Date: 20220304
  Serious: Yes (Hospitalization, Other)
  Sender: FDA-Public Use
  Company Number: US-AUROBINDO-AUR-APL-2021-046047

PATIENT
  Age: 51 Year
  Sex: Male

DRUGS (2)
  1. AMIODARONE HYDROCHLORIDE [Suspect]
     Active Substance: AMIODARONE HYDROCHLORIDE
     Indication: Atrial fibrillation
     Dosage: MULTIPLE COURSES OF AMIODARONE
     Route: 065
  2. AMIODARONE HYDROCHLORIDE [Suspect]
     Active Substance: AMIODARONE HYDROCHLORIDE
     Dosage: 22.4 GRAM, TOTAL
     Route: 065

REACTIONS (3)
  - Thyroiditis [Recovered/Resolved]
  - Weight decreased [Recovered/Resolved]
  - Hyperthyroidism [Recovered/Resolved]
